FAERS Safety Report 7897257-1 (Version None)
Quarter: 2011Q4

REPORT INFORMATION
  Report Type: 
  Country: None (occurrence: None)
  Receive Date: 20111028
  Receipt Date: 20111028
  Transmission Date: 20120403
  Serious: Yes (Other)
  Sender: FDA-Public Use
  Company Number: ALL1-2011-01718

PATIENT
  Age: 6 Year
  Sex: Female
  Weight: 21.8 kg

DRUGS (1)
  1. INTUNIV [Suspect]
     Indication: ATTENTION DEFICIT/HYPERACTIVITY DISORDER
     Dosage: 3 MG 1X/DAY:QD ORAL
     Route: 048
     Dates: start: 20100101, end: 20100501

REACTIONS (3)
  - CONVULSION [None]
  - DYSARTHRIA [None]
  - FATIGUE [None]
